FAERS Safety Report 21044176 (Version 1)
Quarter: 2022Q3

REPORT INFORMATION
  Report Type: Spontaneous
  Country: TW (occurrence: TW)
  Receive Date: 20220705
  Receipt Date: 20220705
  Transmission Date: 20221026
  Serious: Yes (Life-Threatening, Other)
  Sender: FDA-Public Use
  Company Number: TW-JAZZ-2022-TW-022115

PATIENT

DRUGS (1)
  1. ASPARAGINASE [Suspect]
     Active Substance: ASPARAGINASE
     Indication: Acute lymphocytic leukaemia

REACTIONS (19)
  - Pancreatitis necrotising [Unknown]
  - Pseudocyst [Unknown]
  - Diabetes mellitus [Unknown]
  - Pancreatitis chronic [Unknown]
  - Pancreatic abscess [Unknown]
  - Ascites [Unknown]
  - Thrombocytopenia [Unknown]
  - Systemic inflammatory response syndrome [Unknown]
  - Pancreatic enzymes [Unknown]
  - Hyperglycaemia [Unknown]
  - Hypertriglyceridaemia [Unknown]
  - Peripancreatic fluid collection [Unknown]
  - Coagulopathy [Unknown]
  - Hypoalbuminaemia [Unknown]
  - Jaundice [Unknown]
  - Abdominal pain upper [Unknown]
  - Pleural effusion [Unknown]
  - Nausea [Unknown]
  - Vomiting [Unknown]
